FAERS Safety Report 7873559-X (Version None)
Quarter: 2011Q4

REPORT INFORMATION
  Report Type: 
  Country: None (occurrence: None)
  Receive Date: 20111030
  Receipt Date: 20110505
  Transmission Date: 20120403
  Serious: No
  Sender: FDA-Public Use
  Company Number: US-AMGEN-USASP2011014026

PATIENT
  Sex: Male

DRUGS (1)
  1. ENBREL [Suspect]
     Indication: PSORIASIS
     Dosage: 50 MG, 2 TIMES/WK
     Dates: start: 20100901

REACTIONS (4)
  - VITILIGO [None]
  - INCISION SITE PAIN [None]
  - INCISION SITE PRURITUS [None]
  - INCISION SITE BLISTER [None]
